FAERS Safety Report 20771004 (Version 1)
Quarter: 2022Q2

REPORT INFORMATION
  Report Type: Spontaneous
  Country: US (occurrence: US)
  Receive Date: 20220429
  Receipt Date: 20220429
  Transmission Date: 20220721
  Serious: Yes (Hospitalization, Other)
  Sender: FDA-Public Use
  Company Number: US-BRISTOL-MYERS SQUIBB COMPANY-2022-026179

PATIENT
  Age: 73 Year
  Sex: Female

DRUGS (2)
  1. LENALIDOMIDE [Suspect]
     Active Substance: LENALIDOMIDE
     Indication: Plasma cell myeloma
     Route: 065
     Dates: start: 201601
  2. LENALIDOMIDE [Suspect]
     Active Substance: LENALIDOMIDE
     Route: 065
     Dates: start: 201606

REACTIONS (2)
  - Cytopenia [Unknown]
  - Hypersensitivity [Recovered/Resolved]
